FAERS Safety Report 24642621 (Version 1)
Quarter: 2024Q4

REPORT INFORMATION
  Report Type: Spontaneous
  Country: US (occurrence: None)
  Receive Date: 20241120
  Receipt Date: 20241120
  Transmission Date: 20250115
  Serious: No
  Sender: Public
  Company Number: None

PATIENT
  Sex: 0

DRUGS (1)
  1. LINZESS [Suspect]
     Active Substance: LINACLOTIDE

REACTIONS (6)
  - Adverse drug reaction [None]
  - Diarrhoea [None]
  - Therapeutic product effect increased [None]
  - Drug intolerance [None]
  - Product substitution issue [None]
  - Treatment failure [None]
